FAERS Safety Report 20477683 (Version 1)
Quarter: 2022Q1

REPORT INFORMATION
  Report Type: Spontaneous
  Country: FR (occurrence: FR)
  Receive Date: 20220216
  Receipt Date: 20220216
  Transmission Date: 20220424
  Serious: Yes (Other)
  Sender: FDA-Public Use
  Company Number: FR-CELLTRION INC.-2022FR001453

PATIENT

DRUGS (6)
  1. RITUXIMAB [Suspect]
     Active Substance: RITUXIMAB
     Indication: Susac^s syndrome
     Dosage: 1 G, EVERY 6 MONTHS
     Route: 065
     Dates: start: 2019, end: 2020
  2. INFLIXIMAB [Suspect]
     Active Substance: INFLIXIMAB
     Indication: Susac^s syndrome
     Dosage: 5 MG/KG
     Route: 065
     Dates: start: 2021
  3. TOCILIZUMAB [Suspect]
     Active Substance: TOCILIZUMAB
     Indication: Susac^s syndrome
     Dosage: 600 MG
     Route: 065
     Dates: start: 2020, end: 2021
  4. AZATHIOPRINE [Suspect]
     Active Substance: AZATHIOPRINE
     Indication: Susac^s syndrome
     Dosage: 150 MG
     Route: 065
     Dates: start: 2018, end: 2019
  5. CYCLOPHOSPHAMIDE [Suspect]
     Active Substance: CYCLOPHOSPHAMIDE
     Indication: Susac^s syndrome
     Dosage: 750 MG/M2, (12 CYCLES)
     Route: 065
     Dates: start: 2017, end: 2018
  6. MYCOPHENOLATE MOFETIL [Suspect]
     Active Substance: MYCOPHENOLATE MOFETIL
     Indication: Susac^s syndrome
     Dosage: 1 G, QD
     Route: 065
     Dates: start: 2010, end: 2017

REACTIONS (5)
  - Neoplasm [Unknown]
  - Nervous system disorder [Unknown]
  - Disease progression [Unknown]
  - Drug ineffective [Unknown]
  - Off label use [Unknown]
